FAERS Safety Report 10221210 (Version 1)
Quarter: 2014Q2

REPORT INFORMATION
  Report Type: Spontaneous
  Country: FR (occurrence: FR)
  Receive Date: 20140606
  Receipt Date: 20140606
  Transmission Date: 20141212
  Serious: Yes (Hospitalization)
  Sender: FDA-Public Use
  Company Number: FR-SA-2014SA069220

PATIENT
  Age: 90 Year
  Sex: Female

DRUGS (5)
  1. LOVENOX [Suspect]
     Indication: HIP ARTHROPLASTY
     Route: 058
     Dates: start: 201401, end: 20140315
  2. ASPEGIC ENFANTS [Suspect]
     Indication: PRODUCT USED FOR UNKNOWN INDICATION
     Route: 048
  3. BISOPROLOL [Concomitant]
     Dosage: STRENGTH: 2.5 MG?DOSE: 1-0-0
  4. COVERSYL [Concomitant]
     Dosage: STRENGTH: 5
  5. ANTITHROMBOTIC AGENTS [Concomitant]

REACTIONS (2)
  - Condition aggravated [Recovered/Resolved]
  - Haematuria [Recovered/Resolved]
